FAERS Safety Report 22070477 (Version 4)
Quarter: 2024Q2

REPORT INFORMATION
  Report Type: Report from Study
  Country: US (occurrence: US)
  Receive Date: 20230307
  Receipt Date: 20240613
  Transmission Date: 20240715
  Serious: Yes (Other)
  Sender: FDA-Public Use
  Company Number: US-JAZZ PHARMACEUTICALS-2023-US-005249

PATIENT
  Age: 51 Year
  Sex: Male

DRUGS (11)
  1. XYWAV [Suspect]
     Active Substance: CALCIUM OXYBATE\MAGNESIUM OXYBATE\POTASSIUM OXYBATE\SODIUM OXYBATE
     Indication: Narcolepsy
     Dosage: 4.5 GRAM, BID
     Route: 048
  2. XYWAV [Suspect]
     Active Substance: CALCIUM OXYBATE\MAGNESIUM OXYBATE\POTASSIUM OXYBATE\SODIUM OXYBATE
     Indication: Cataplexy
  3. AMITRIPTYLINE HYDROCHLORIDE [Concomitant]
     Active Substance: AMITRIPTYLINE HYDROCHLORIDE
     Indication: Product used for unknown indication
     Dosage: UNK
     Dates: start: 20240606
  4. KLOR-CON M20 [Concomitant]
     Active Substance: POTASSIUM CHLORIDE
     Indication: Product used for unknown indication
     Dosage: UNK
     Dates: start: 20240610
  5. ONDANSETRON [Concomitant]
     Active Substance: ONDANSETRON
     Indication: Product used for unknown indication
     Dosage: UNK
     Dates: start: 20240101
  6. CHLORTHALIDONE [Concomitant]
     Active Substance: CHLORTHALIDONE
     Indication: Product used for unknown indication
     Dosage: UNK
     Dates: start: 20230601
  7. METFORMIN HYDROCHLORIDE [Concomitant]
     Active Substance: METFORMIN HYDROCHLORIDE
     Indication: Product used for unknown indication
     Dosage: UNK
     Dates: start: 20230606
  8. OZEMPIC [Concomitant]
     Active Substance: SEMAGLUTIDE
     Indication: Product used for unknown indication
     Dosage: UNK
     Dates: start: 20230601
  9. XYOSTED [Concomitant]
     Active Substance: TESTOSTERONE ENANTHATE
     Indication: Product used for unknown indication
     Dosage: UNK
     Dates: start: 20240303
  10. NURTEC ODT [Concomitant]
     Active Substance: RIMEGEPANT SULFATE
     Indication: Product used for unknown indication
     Dosage: UNK
     Dates: start: 20220601
  11. FERROUS SULFATE [Concomitant]
     Active Substance: FERROUS SULFATE
     Indication: Product used for unknown indication
     Dosage: UNK
     Dates: start: 20231101

REACTIONS (11)
  - Nephrolithiasis [Unknown]
  - Thrombosis [Unknown]
  - Muscle rupture [Unknown]
  - Post-acute COVID-19 syndrome [Unknown]
  - Exostosis [Unknown]
  - Osteoarthritis [Unknown]
  - Non-alcoholic fatty liver [Unknown]
  - Vitamin D increased [Unknown]
  - Dyspnoea [Recovered/Resolved]
  - Pelvic pain [Unknown]
  - Ligamentitis [Unknown]

NARRATIVE: CASE EVENT DATE: 20230601
